FAERS Safety Report 10430278 (Version 2)
Quarter: 2014Q4

REPORT INFORMATION
  Report Type: Spontaneous
  Country: CA (occurrence: None)
  Receive Date: 20140902
  Receipt Date: 20141124
  Transmission Date: 20150528
  Serious: Yes (Hospitalization)
  Sender: FDA-Public Use
  Company Number: 2014MPI01042

PATIENT
  Age: 35 Year
  Sex: Male
  Weight: 67.6 kg

DRUGS (11)
  1. VINBLASTINE [Suspect]
     Active Substance: VINBLASTINE
     Indication: HODGKIN^S DISEASE
     Dosage: 10 UNK, INTRAVENOUS
     Route: 042
     Dates: start: 20140709, end: 20140806
  2. ZOPICLONE [Concomitant]
     Active Substance: ZOPICLONE
  3. DOXORUBICIN [Suspect]
     Active Substance: DOXORUBICIN
     Indication: HODGKIN^S DISEASE
     Dosage: 42 UNK, UNK, INTRAVENOUS
     Route: 042
     Dates: start: 20140709, end: 20140806
  4. DACARBAZINE. [Suspect]
     Active Substance: DACARBAZINE
     Indication: HODGKIN^S DISEASE
     Dosage: 634 UNK, UNK, INTRAVENOUS
     Route: 042
     Dates: start: 20140709, end: 20140806
  5. PANTOPRAZOLE (PANTOPRAZOLE) [Concomitant]
     Active Substance: PANTOPRAZOLE SODIUM
  6. NEUPOGEN (FILGRASTIM) [Concomitant]
     Active Substance: FILGRASTIM
  7. BRENTUXIMAB VEDOTIN [Suspect]
     Active Substance: BRENTUXIMAB VEDOTIN
     Indication: HODGKIN^S DISEASE
     Dosage: 69 UNK, UNK INTRAVENOUS
     Route: 042
     Dates: start: 20140709, end: 20140806
  8. PREDNISONE (PREDNISONE ACETATE) [Concomitant]
  9. PROZAC [Concomitant]
     Active Substance: FLUOXETINE HYDROCHLORIDE
  10. TYLENOL [Concomitant]
     Active Substance: ACETAMINOPHEN
  11. CIPROFLOXACIN (CIPROFLOXACIN HYDROCHLORIDE) [Concomitant]

REACTIONS (3)
  - Colitis [None]
  - Abdominal pain [None]
  - Febrile neutropenia [None]

NARRATIVE: CASE EVENT DATE: 20140815
